FAERS Safety Report 9331551 (Version 1)
Quarter: 2013Q2

REPORT INFORMATION
  Report Type: Spontaneous
  Country: US (occurrence: US)
  Receive Date: 20130605
  Receipt Date: 20130605
  Transmission Date: 20140414
  Serious: No
  Sender: FDA-Public Use
  Company Number: US-PFIZER INC-2013170180

PATIENT
  Sex: Female

DRUGS (2)
  1. ZOLOFT [Suspect]
     Dosage: 50 MG, 5X/DAY
     Route: 048
  2. SERTRALINE HCL [Suspect]
     Dosage: UNK

REACTIONS (3)
  - Poor quality drug administered [Unknown]
  - Malaise [Unknown]
  - Feeling abnormal [Unknown]
